FAERS Safety Report 5610474-6 (Version None)
Quarter: 2008Q1

REPORT INFORMATION
  Report Type: 
  Country: None (occurrence: None)
  Receive Date: 20080111
  Receipt Date: 20071019
  Transmission Date: 20080703
  Serious: Yes (Hospitalization)
  Sender: FDA-Public Use
  Company Number: HQWYE234128JUL03

PATIENT
  Age: 49 Year
  Sex: Female

DRUGS (3)
  1. PREMPRO [Suspect]
  2. CYCRIN [Suspect]
     Dosage: 2.5 MG
  3. PREMARIN [Suspect]
     Dosage: 0.625 MG

REACTIONS (2)
  - CHEST PAIN [None]
  - MYOCARDIAL INFARCTION [None]
